FAERS Safety Report 6656145-9 (Version None)
Quarter: 2010Q1

REPORT INFORMATION
  Report Type: 
  Country: None (occurrence: None)
  Receive Date: 20100326
  Receipt Date: 20100326
  Transmission Date: 20100710
  Serious: Yes (Hospitalization)
  Sender: FDA-Public Use
  Company Number: None

PATIENT
  Sex: Female

DRUGS (7)
  1. PROPOFOL [Suspect]
     Indication: ENDOSCOPY
     Dosage: X1 IV
     Route: 042
     Dates: start: 20090315, end: 20090315
  2. PLAQUENIL [Concomitant]
  3. TOPAMAX [Concomitant]
  4. SYNTHROID [Concomitant]
  5. NYSTATIN [Concomitant]
  6. FLUCONAZOLE [Concomitant]
  7. AMITIZA [Concomitant]

REACTIONS (5)
  - COGNITIVE DISORDER [None]
  - DRY EYE [None]
  - DRY MOUTH [None]
  - DYSTONIA [None]
  - SYSTEMIC LUPUS ERYTHEMATOSUS [None]
